FAERS Safety Report 8886499 (Version 4)
Quarter: 2012Q4

REPORT INFORMATION
  Report Type: 
  Country: US (occurrence: US)
  Receive Date: 20121105
  Receipt Date: 20121121
  Transmission Date: 20130627
  Serious: Yes (Death, Hospitalization, Other)
  Sender: FDA-Public Use
  Company Number: US-JNJFOC-20121101152

PATIENT
  Sex: Male
  Weight: 107.5 kg

DRUGS (14)
  1. XARELTO [Suspect]
     Indication: CEREBROVASCULAR ACCIDENT PROPHYLAXIS
     Route: 048
     Dates: start: 20121018
  2. XARELTO [Suspect]
     Indication: ATRIAL FIBRILLATION
     Route: 048
     Dates: start: 20121018
  3. MONTELUKAST [Concomitant]
  4. CRESTOR [Concomitant]
  5. NIACIN [Concomitant]
  6. GLIPIZIDE [Concomitant]
  7. FORMOTEROL [Concomitant]
  8. MOMETASONE [Concomitant]
  9. NTG [Concomitant]
  10. FINASTERIDE [Concomitant]
  11. IMDUR [Concomitant]
  12. DILTIA XT [Concomitant]
  13. LISINOPRIL/HCTZ [Concomitant]
  14. TERAZOSIN [Concomitant]

REACTIONS (1)
  - Haemorrhage intracranial [Fatal]
